FAERS Safety Report 7052554-7 (Version None)
Quarter: 2010Q4

REPORT INFORMATION
  Report Type: 
  Country: None (occurrence: None)
  Receive Date: 20101019
  Receipt Date: 20101014
  Transmission Date: 20110411
  Serious: Yes (Other)
  Sender: FDA-Public Use
  Company Number: BR-PFIZER INC-2010117326

PATIENT
  Age: 36 Year
  Sex: Female
  Weight: 93 kg

DRUGS (6)
  1. CHAMPIX [Suspect]
     Indication: TOBACCO ABUSE
     Dosage: 0.5 MG, 1X/DAY
     Route: 048
     Dates: start: 20100911, end: 20100101
  2. CHAMPIX [Suspect]
     Dosage: 1 MG, 2X/DAY
     Route: 048
     Dates: start: 20100101
  3. TRAZODONE HYDROCHLORIDE [Concomitant]
     Indication: DEPRESSION
     Dosage: UNK
  4. HALDOL [Concomitant]
     Indication: DEPRESSION
     Dosage: UNK
  5. SERTRALINE [Concomitant]
     Indication: DEPRESSION
     Dosage: UNK
  6. DEPAKOTE [Concomitant]
     Indication: BIPOLAR DISORDER
     Dosage: UNK

REACTIONS (2)
  - ANXIETY [None]
  - NERVOUSNESS [None]
